FAERS Safety Report 6311952-7 (Version None)
Quarter: 2009Q3

REPORT INFORMATION
  Report Type: 
  Country: None (occurrence: None)
  Receive Date: 20090817
  Receipt Date: 20080710
  Transmission Date: 20100115
  Serious: Yes (Other)
  Sender: FDA-Public Use
  Company Number: US-BRISTOL-MYERS SQUIBB COMPANY-14255350

PATIENT
  Sex: Female

DRUGS (6)
  1. ESTRACE [Suspect]
     Dates: start: 19880101, end: 19971001
  2. PREMARIN [Suspect]
     Dates: start: 19880101, end: 19971001
  3. PROVERA [Suspect]
     Dates: start: 19880101, end: 19971001
  4. PREMPRO [Suspect]
     Dates: start: 19880101, end: 19971001
  5. AYGESTIN [Suspect]
     Dates: start: 19880101, end: 19971001
  6. MEDROXYPROGESTERONE ACETATE [Suspect]
     Dates: start: 19880101, end: 19971001

REACTIONS (1)
  - BREAST CANCER [None]
